FAERS Safety Report 25976208 (Version 2)
Quarter: 2025Q4

REPORT INFORMATION
  Report Type: Report from Study
  Country: GB (occurrence: GB)
  Receive Date: 20251029
  Receipt Date: 20251217
  Transmission Date: 20260118
  Serious: Yes (Other)
  Sender: TEVA
  Company Number: GB-TEVA-VS-3387429

PATIENT
  Age: 66 Year
  Sex: Male

DRUGS (2)
  1. OCTREOTIDE [Suspect]
     Active Substance: OCTREOTIDE
     Indication: Product used for unknown indication
     Route: 065
     Dates: start: 2025
  2. OCTREOTIDE [Suspect]
     Active Substance: OCTREOTIDE
     Indication: Product used for unknown indication
     Route: 065
     Dates: end: 20250919

REACTIONS (3)
  - Lower respiratory tract infection [Unknown]
  - Middle insomnia [Unknown]
  - Terminal insomnia [Unknown]

NARRATIVE: CASE EVENT DATE: 20251001
